FAERS Safety Report 5527579-0 (Version None)
Quarter: 2007Q4

REPORT INFORMATION
  Report Type: 
  Country: None (occurrence: None)
  Receive Date: 20071128
  Receipt Date: 20071127
  Transmission Date: 20080405
  Serious: Yes (Hospitalization, Other)
  Sender: FDA-Public Use
  Company Number: US-BRISTOL-MYERS SQUIBB COMPANY-13918826

PATIENT
  Age: 48 Year
  Sex: Female
  Weight: 74 kg

DRUGS (6)
  1. TAXOL [Suspect]
     Dosage: ACTUAL DOSE = 364MG
     Route: 042
     Dates: start: 20070824
  2. CARBOPLATIN [Suspect]
     Dosage: 6 DOSAGE FORM = 6 AUC. ACTUAL DOSE = 844MG
     Route: 042
     Dates: start: 20070824, end: 20070902
  3. ETOPOSIDE [Suspect]
     Dosage: 50MG ALTERNATE WITH 100MG;TOTAL DOSE 750MG FOR SEP24,02OCT07
     Route: 048
     Dates: start: 20070824, end: 20071003
  4. REGLAN [Concomitant]
     Indication: HIV INFECTION
     Dates: start: 20070101
  5. ATIVAN [Concomitant]
     Indication: HIV INFECTION
     Dates: start: 20070824
  6. ZOFRAN [Concomitant]
     Indication: HIV INFECTION
     Dates: start: 20070824

REACTIONS (3)
  - MALNUTRITION [None]
  - NAUSEA [None]
  - VOMITING [None]
